FAERS Safety Report 7516463-9 (Version None)
Quarter: 2011Q2

REPORT INFORMATION
  Report Type: 
  Country: None (occurrence: None)
  Receive Date: 20110601
  Receipt Date: 20110517
  Transmission Date: 20111010
  Serious: Yes (Hospitalization)
  Sender: FDA-Public Use
  Company Number: A0788113A

PATIENT
  Age: 48 Year
  Sex: Male

DRUGS (2)
  1. AVANDAMET [Suspect]
     Route: 048
     Dates: start: 20040201, end: 20080501
  2. AVANDARYL [Suspect]
     Route: 048
     Dates: start: 20060101, end: 20080101

REACTIONS (3)
  - MYOCARDIAL ISCHAEMIA [None]
  - MYOCARDIAL INFARCTION [None]
  - CARDIAC OPERATION [None]
